FAERS Safety Report 10097513 (Version 1)
Quarter: 2014Q2

REPORT INFORMATION
  Report Type: Spontaneous
  Country: CA (occurrence: CA)
  Receive Date: 20140423
  Receipt Date: 20140423
  Transmission Date: 20141212
  Serious: Yes (Other)
  Sender: FDA-Public Use
  Company Number: CA-009507513-1404CAN010854

PATIENT
  Age: 26 Year
  Sex: Female

DRUGS (1)
  1. TEMODAL [Suspect]
     Indication: EWING^S SARCOMA
     Dosage: DAILY DOSE: 150 MG
     Route: 048
     Dates: start: 201204, end: 201205

REACTIONS (4)
  - Neoplasm progression [Unknown]
  - Adverse event [Unknown]
  - Disease complication [Unknown]
  - Pain [Unknown]
